FAERS Safety Report 5410547-7 (Version None)
Quarter: 2007Q3

REPORT INFORMATION
  Report Type: 
  Country: None (occurrence: None)
  Receive Date: 20070810
  Receipt Date: 20070226
  Transmission Date: 20080115
  Serious: No
  Sender: FDA-Public Use
  Company Number: A0641213A

PATIENT
  Sex: Female

DRUGS (1)
  1. PAXIL [Suspect]
     Indication: DRUG USE FOR UNKNOWN INDICATION

REACTIONS (6)
  - DIZZINESS [None]
  - ILL-DEFINED DISORDER [None]
  - MALAISE [None]
  - MUSCLE SPASMS [None]
  - NAUSEA [None]
  - TINNITUS [None]
